FAERS Safety Report 21700323 (Version 1)
Quarter: 2022Q4

REPORT INFORMATION
  Report Type: Spontaneous
  Country: CN (occurrence: CN)
  Receive Date: 20221208
  Receipt Date: 20221208
  Transmission Date: 20230112
  Serious: Yes (Hospitalization, Other)
  Sender: FDA-Public Use
  Company Number: CN-PFIZER INC-PV202200116872

PATIENT
  Age: 46 Year
  Sex: Male
  Weight: 48 kg

DRUGS (10)
  1. EPIRUBICIN [Suspect]
     Active Substance: EPIRUBICIN
     Indication: T-cell lymphoma
     Dosage: 60 MG, 1X/DAY
     Route: 041
     Dates: start: 20220910, end: 20220910
  2. ETOPOSIDE [Suspect]
     Active Substance: ETOPOSIDE
     Indication: T-cell lymphoma
     Dosage: 5 ML, 1X/DAY
     Route: 041
     Dates: start: 20220910, end: 20220910
  3. ETOPOSIDE [Suspect]
     Active Substance: ETOPOSIDE
     Dosage: 5 ML, 1X/DAY
     Route: 041
     Dates: start: 20220911, end: 20220911
  4. CYCLOPHOSPHAMIDE [Suspect]
     Active Substance: CYCLOPHOSPHAMIDE
     Indication: T-cell lymphoma
     Dosage: 0.8 G, 1X/DAY
     Route: 041
     Dates: start: 20220910, end: 20220910
  5. MESNA [Suspect]
     Active Substance: MESNA
     Indication: T-cell lymphoma
     Dosage: 0.4 G, 2X/DAY
     Route: 041
     Dates: start: 20220910, end: 20220910
  6. SODIUM CHLORIDE [Concomitant]
     Active Substance: SODIUM CHLORIDE
     Indication: Vehicle solution use
     Dosage: 100 ML, 1X/DAY
     Route: 041
     Dates: start: 20220910, end: 20220910
  7. SODIUM CHLORIDE [Concomitant]
     Active Substance: SODIUM CHLORIDE
     Dosage: 100 ML, 1X/DAY
     Route: 041
     Dates: start: 20220910, end: 20220910
  8. SODIUM CHLORIDE [Concomitant]
     Active Substance: SODIUM CHLORIDE
     Dosage: 100 ML, 2X/DAY
     Route: 041
     Dates: start: 20220910, end: 20220910
  9. SODIUM CHLORIDE [Concomitant]
     Active Substance: SODIUM CHLORIDE
     Dosage: 500 ML, 1X/DAY
     Route: 041
     Dates: start: 20220910, end: 20220910
  10. SODIUM CHLORIDE [Concomitant]
     Active Substance: SODIUM CHLORIDE
     Dosage: 500 ML, 1X/DAY
     Route: 041
     Dates: start: 20220911, end: 20220911

REACTIONS (1)
  - Full blood count decreased [Recovering/Resolving]

NARRATIVE: CASE EVENT DATE: 20220919
